FAERS Safety Report 25809051 (Version 1)
Quarter: 2025Q3

REPORT INFORMATION
  Report Type: Spontaneous
  Country: US (occurrence: US)
  Receive Date: 20250916
  Receipt Date: 20250916
  Transmission Date: 20251021
  Serious: Yes (Other)
  Sender: BRISTOL-MYERS SQUIBB COMPANY
  Company Number: US-BRISTOL-MYERS SQUIBB COMPANY-2025-126128

PATIENT
  Age: 49 Year
  Sex: Female

DRUGS (2)
  1. TRIAMCINOLONE ACETONIDE [Interacting]
     Active Substance: TRIAMCINOLONE ACETONIDE
     Indication: Dermatitis
  2. COBICISTAT [Interacting]
     Active Substance: COBICISTAT
     Indication: HIV infection

REACTIONS (4)
  - Cushing^s syndrome [Unknown]
  - Adrenal insufficiency [Unknown]
  - Off label use [Unknown]
  - Labelled drug-drug interaction issue [Unknown]
